FAERS Safety Report 6726188-5 (Version None)
Quarter: 2010Q2

REPORT INFORMATION
  Report Type: 
  Country: None (occurrence: None)
  Receive Date: 20100514
  Receipt Date: 20100504
  Transmission Date: 20101027
  Serious: Yes (Other)
  Sender: FDA-Public Use
  Company Number: US-PFIZER INC-2010024314

PATIENT
  Sex: Male
  Weight: 64.9 kg

DRUGS (5)
  1. CELEBREX [Suspect]
     Indication: ARTHRALGIA
     Dosage: 200 MG, 2X/DAY
     Route: 048
     Dates: start: 20100127, end: 20100202
  2. CELEBREX [Suspect]
     Indication: EPICONDYLITIS
  3. CORTISONE [Suspect]
     Indication: EPICONDYLITIS
     Dosage: UNK
     Dates: start: 20100101
  4. MEDROL [Concomitant]
     Indication: EPICONDYLITIS
     Dosage: 40 MG, SINGLE
     Dates: start: 20100101
  5. LIDOCAINE [Concomitant]
     Indication: EPICONDYLITIS
     Dosage: 1 ML, SINGLE

REACTIONS (7)
  - DYSPNOEA [None]
  - ECZEMA [None]
  - ERYTHEMA MULTIFORME [None]
  - HYPOAESTHESIA FACIAL [None]
  - SPEECH DISORDER [None]
  - STEVENS-JOHNSON SYNDROME [None]
  - URTICARIA [None]
